FAERS Safety Report 6303822-5 (Version None)
Quarter: 2009Q3

REPORT INFORMATION
  Report Type: 
  Country: None (occurrence: None)
  Receive Date: 20090805
  Receipt Date: 20090728
  Transmission Date: 20100115
  Serious: Yes (Hospitalization, Other)
  Sender: FDA-Public Use
  Company Number: 2009S1005938

PATIENT
  Age: 72 Year
  Sex: Female

DRUGS (4)
  1. PHOSPHOSODA FLAVOR NOT SPECIFIED [Suspect]
     Dosage: 90 ML; TOTAL; PO
     Route: 048
     Dates: start: 20060326, end: 20060327
  2. THEOPHYLLINE [Concomitant]
  3. VERAPAMIL [Concomitant]
  4. LAMISIL /00992601/ [Concomitant]

REACTIONS (5)
  - DEHYDRATION [None]
  - DIALYSIS [None]
  - DYSPNOEA [None]
  - HAEMODIALYSIS [None]
  - RENAL FAILURE CHRONIC [None]
